FAERS Safety Report 16426723 (Version 3)
Quarter: 2019Q2

REPORT INFORMATION
  Report Type: Spontaneous
  Country: CA (occurrence: CA)
  Receive Date: 20190613
  Receipt Date: 20190626
  Transmission Date: 20190711
  Serious: Yes (Other)
  Sender: FDA-Public Use
  Company Number: CA-PFIZER INC-2019250103

PATIENT
  Age: 49 Year
  Sex: Male

DRUGS (2)
  1. XELJANZ [Suspect]
     Active Substance: TOFACITINIB CITRATE
     Indication: COLITIS ULCERATIVE
     Dosage: 10 MG, 2X/DAY
     Route: 048
     Dates: start: 201905
  2. PREDNISONE. [Suspect]
     Active Substance: PREDNISONE
     Dosage: UNK
     Dates: start: 201906

REACTIONS (16)
  - Pain [Unknown]
  - Stomatitis [Recovered/Resolved]
  - Depression [Unknown]
  - Eye discharge [Recovered/Resolved]
  - Haemorrhage [Unknown]
  - Drug ineffective [Unknown]
  - Eye inflammation [Recovered/Resolved]
  - Suicidal ideation [Recovered/Resolved]
  - Abdominal discomfort [Unknown]
  - Weight decreased [Unknown]
  - Asthenia [Unknown]
  - Hair growth abnormal [Unknown]
  - Dysphagia [Recovered/Resolved]
  - Oropharyngeal pain [Unknown]
  - Condition aggravated [Unknown]
  - Oral herpes [Unknown]

NARRATIVE: CASE EVENT DATE: 2019
